FAERS Safety Report 4932856-8 (Version None)
Quarter: 2006Q1

REPORT INFORMATION
  Report Type: 
  Country: None (occurrence: None)
  Receive Date: 20060301
  Receipt Date: 20060301
  Transmission Date: 20060701
  Serious: No
  Sender: FDA-Public Use
  Company Number: None

PATIENT
  Sex: Female

DRUGS (10)
  1. OXYCODONE 80 (NA) GENERIC [Suspect]
     Indication: PAIN
     Dosage: 80 MG Q 8 HRS PO
     Route: 048
     Dates: start: 20051201
  2. OXYCODONE 80 (NA) GENERIC [Suspect]
     Indication: PAIN
     Dosage: 80 MG Q 8 HRS PO
     Route: 048
     Dates: start: 20060101
  3. POTASSIUM CHLORIDE [Concomitant]
  4. PROTONIX [Concomitant]
  5. PAXIL [Concomitant]
  6. BUSPAR [Concomitant]
  7. FUROSEMIDE [Concomitant]
  8. PLAVIX [Concomitant]
  9. NORVASC [Concomitant]
  10. COREG [Concomitant]

REACTIONS (3)
  - DRUG EFFECT DECREASED [None]
  - NAUSEA [None]
  - THERAPEUTIC RESPONSE UNEXPECTED WITH DRUG SUBSTITUTION [None]
